FAERS Safety Report 4518631-7 (Version None)
Quarter: 2004Q4

REPORT INFORMATION
  Report Type: 
  Country: None (occurrence: None)
  Receive Date: 20041104
  Receipt Date: 20040331
  Transmission Date: 20050328
  Serious: Yes (Disabling)
  Sender: FDA-Public Use
  Company Number: USA040363686

PATIENT
  Sex: Male

DRUGS (4)
  1. VANCOCIN HCL [Suspect]
     Indication: CLOSTRIDIAL INFECTION
     Dates: start: 19920101
  2. VANCOCIN HCL [Suspect]
     Indication: SUBACUTE ENDOCARDITIS
     Dates: start: 19920101
  3. VANCOCIN HCL [Suspect]
     Indication: CLOSTRIDIAL INFECTION
     Dosage: 250 MG
     Dates: start: 20040301, end: 20040301
  4. VANCOCIN HCL [Suspect]
     Indication: SUBACUTE ENDOCARDITIS
     Dosage: 250 MG
     Dates: start: 20040301, end: 20040301

REACTIONS (3)
  - DEAFNESS [None]
  - DEAFNESS UNILATERAL [None]
  - HYPOACUSIS [None]
